FAERS Safety Report 14763912 (Version 2)
Quarter: 2018Q2

REPORT INFORMATION
  Report Type: Report from Study
  Country: US (occurrence: US)
  Receive Date: 20180416
  Receipt Date: 20180516
  Transmission Date: 20180711
  Serious: Yes (Other)
  Sender: FDA-Public Use
  Company Number: US-IPSEN BIOPHARMACEUTICALS, INC.-2018-05292

PATIENT
  Age: 7 Year
  Sex: Female
  Weight: 16.4 kg

DRUGS (2)
  1. INCRELEX [Suspect]
     Active Substance: MECASERMIN
     Dosage: 152.44 - 213.41 UG/KG
     Route: 058
     Dates: start: 2018
  2. INCRELEX [Suspect]
     Active Substance: MECASERMIN
     Indication: PRIMARY INSULIN LIKE GROWTH FACTOR-1 DEFICIENCY
     Dosage: 2500 - 3500 UG
     Route: 058
     Dates: end: 2018

REACTIONS (6)
  - Overdose [Unknown]
  - Seizure [Recovered/Resolved]
  - Hypophagia [Unknown]
  - Hypoglycaemia [Unknown]
  - Drug administered to patient of inappropriate age [Unknown]
  - Memory impairment [Recovered/Resolved]

NARRATIVE: CASE EVENT DATE: 201803
